FAERS Safety Report 12395915 (Version 1)
Quarter: 2016Q2

REPORT INFORMATION
  Report Type: Spontaneous
  Country: US (occurrence: US)
  Receive Date: 20160523
  Receipt Date: 20160523
  Transmission Date: 20160815
  Serious: No
  Sender: FDA-Public Use
  Company Number: US-ASTRAZENECA-2016SE40925

PATIENT
  Sex: Female

DRUGS (2)
  1. ARIMIDEX [Suspect]
     Active Substance: ANASTROZOLE
     Dosage: ANASTRZOLE GENERIC
     Route: 065
  2. ARIMIDEX [Suspect]
     Active Substance: ANASTROZOLE
     Route: 048
     Dates: start: 201601

REACTIONS (5)
  - Chills [Unknown]
  - Drug dispensing error [Unknown]
  - Visual impairment [Unknown]
  - Drug administration error [Unknown]
  - Hot flush [Unknown]

NARRATIVE: CASE EVENT DATE: 201601
